FAERS Safety Report 23971708 (Version 1)
Quarter: 2024Q2

REPORT INFORMATION
  Report Type: Spontaneous
  Country: US (occurrence: US)
  Receive Date: 20240613
  Receipt Date: 20240613
  Transmission Date: 20240716
  Serious: No
  Sender: FDA-Public Use
  Company Number: US-BAYER-2024A082415

PATIENT
  Sex: Male

DRUGS (2)
  1. CIPRO [Suspect]
     Active Substance: CIPROFLOXACIN\CIPROFLOXACIN HYDROCHLORIDE
     Indication: COVID-19
     Dosage: 500 MG
     Route: 048
     Dates: start: 202111
  2. CIPRO [Suspect]
     Active Substance: CIPROFLOXACIN\CIPROFLOXACIN HYDROCHLORIDE
     Indication: Arthropod bite

REACTIONS (6)
  - Tendonitis [Recovering/Resolving]
  - Tendon rupture [Recovering/Resolving]
  - Tendon rupture [Unknown]
  - Rotator cuff syndrome [Unknown]
  - Arthralgia [None]
  - Off label use [None]

NARRATIVE: CASE EVENT DATE: 20230101
